FAERS Safety Report 7045751-8 (Version None)
Quarter: 2010Q4

REPORT INFORMATION
  Report Type: 
  Country: None (occurrence: None)
  Receive Date: 20101013
  Receipt Date: 20101013
  Transmission Date: 20110411
  Serious: No
  Sender: FDA-Public Use
  Company Number: None

PATIENT

DRUGS (1)
  1. ZOLPIDEM [Suspect]

REACTIONS (5)
  - ABNORMAL DREAMS [None]
  - ARRHYTHMIA [None]
  - COORDINATION ABNORMAL [None]
  - GRAVITATIONAL OEDEMA [None]
  - VERTIGO [None]
